FAERS Safety Report 16437829 (Version 1)
Quarter: 2019Q2

REPORT INFORMATION
  Report Type: Spontaneous
  Country: DE (occurrence: DE)
  Receive Date: 20190616
  Receipt Date: 20190616
  Transmission Date: 20190711
  Serious: Yes (Other)
  Sender: FDA-Public Use
  Company Number: DE-PROVELL PHARMACEUTICALS-2069228

PATIENT

DRUGS (1)
  1. EUTHYROX [Suspect]
     Active Substance: LEVOTHYROXINE SODIUM
     Indication: AUTOIMMUNE THYROIDITIS

REACTIONS (8)
  - Thyroxine free increased [None]
  - Basedow^s disease [None]
  - Goitre [None]
  - Blood thyroid stimulating hormone decreased [None]
  - Weight decreased [None]
  - Tremor [None]
  - Heart rate increased [None]
  - Tri-iodothyronine free increased [None]

NARRATIVE: CASE EVENT DATE: 201811
